FAERS Safety Report 7581398-2 (Version None)
Quarter: 2011Q2

REPORT INFORMATION
  Report Type: 
  Country: None (occurrence: None)
  Receive Date: 20110629
  Receipt Date: 20110615
  Transmission Date: 20111010
  Serious: Yes (Other)
  Sender: FDA-Public Use
  Company Number: PHHY2011JP53797

PATIENT
  Sex: Male
  Weight: 73 kg

DRUGS (19)
  1. VALSARTAN [Suspect]
     Dosage: 160 MG, QD
     Route: 048
     Dates: start: 20100420, end: 20101004
  2. MICARDIS [Concomitant]
     Indication: HYPERTENSION
     Dosage: 40 MG, UNK
     Route: 048
     Dates: start: 20101005
  3. ZETIA [Concomitant]
     Dosage: 10 MG, UNK
     Route: 048
     Dates: start: 20090203, end: 20100405
  4. EPADEL [Concomitant]
     Dosage: 1800 MG, UNK
     Route: 048
     Dates: start: 20091113
  5. MARZULENE S [Concomitant]
     Dosage: 1.5 G, UNK
     Route: 048
     Dates: start: 20091113, end: 20100908
  6. PRAVASTATIN SODIUM [Concomitant]
     Dosage: 10 MG, UNK
     Route: 048
     Dates: start: 20100420, end: 20100816
  7. NATRIX [Concomitant]
     Indication: HYPERTENSION
     Dosage: 1 MG, UNK
     Route: 048
     Dates: start: 20090330, end: 20090412
  8. ONON [Concomitant]
     Dosage: 225 MG, UNK
     Route: 048
     Dates: start: 20110118
  9. VALSARTAN [Suspect]
     Dosage: 80 MG, QD
     Route: 048
     Dates: start: 20090330, end: 20100419
  10. CHOLEBRINE [Concomitant]
     Dosage: 1500 MG, UNK
     Route: 048
     Dates: start: 20100406, end: 20100816
  11. FAMOTIDINE [Concomitant]
     Dosage: 20 MG, UNK
     Route: 048
     Dates: start: 20090330, end: 20090906
  12. SIGMART [Concomitant]
     Dosage: 15 MG, UNK
     Route: 048
     Dates: start: 20090126, end: 20090329
  13. LIVALO [Concomitant]
     Dosage: 2 MG, UNK
     Route: 048
     Dates: start: 20090125, end: 20100305
  14. CRESTOR [Concomitant]
     Dosage: 2.5 MG, UNK
     Route: 048
     Dates: start: 20101102
  15. VALSARTAN [Suspect]
     Dosage: 40 MG, QD
     Route: 048
     Dates: start: 20090316, end: 20090329
  16. ASPIRIN [Concomitant]
     Dosage: 100 MG, UNK
     Route: 048
     Dates: start: 20090125
  17. PLAVIX [Concomitant]
     Dosage: 75 MG, UNK
     Route: 048
     Dates: start: 20100105, end: 20100817
  18. LANSOPRAZOLE [Concomitant]
     Dosage: 15 MG, UNK
     Route: 048
     Dates: start: 20090125, end: 20090329
  19. TICLOPIDINE HCL [Concomitant]
     Dosage: 200 MG, UNK
     Route: 048
     Dates: start: 20091113, end: 20091119

REACTIONS (6)
  - BLOOD PRESSURE DIASTOLIC DECREASED [None]
  - LIMB DISCOMFORT [None]
  - INTERSTITIAL LUNG DISEASE [None]
  - BLOOD GLUCOSE INCREASED [None]
  - DERMATITIS CONTACT [None]
  - DRUG INEFFECTIVE [None]
